FAERS Safety Report 7917862-3 (Version None)
Quarter: 2011Q4

REPORT INFORMATION
  Report Type: 
  Country: None (occurrence: None)
  Receive Date: 20111116
  Receipt Date: 20111104
  Transmission Date: 20120403
  Serious: Yes (Hospitalization, Other)
  Sender: FDA-Public Use
  Company Number: PHHY2011BR88733

PATIENT
  Sex: Female

DRUGS (6)
  1. BETAHISTINE HYDROCHLORIDE [Concomitant]
     Indication: LABYRINTHITIS
     Dosage: 24 MG, (ONE TABLET BEFORE SLEEPING)
     Route: 048
     Dates: start: 20110101
  2. MIRTAZAPINE [Concomitant]
     Indication: ANXIOLYTIC THERAPY
     Dosage: 10 MG, (ONE TABLET A DAY)
     Dates: start: 20100101
  3. EXFORGE [Suspect]
     Indication: HYPOTENSION
  4. CLONAZEPAM [Concomitant]
     Indication: ANXIOLYTIC THERAPY
     Dosage: 1 OR 2 MG (ONCE DAILY)
     Route: 060
     Dates: start: 20100101
  5. BETAHISTINE HYDROCHLORIDE [Concomitant]
     Indication: TINNITUS
  6. EXFORGE [Suspect]
     Indication: HYPERTENSION
     Dosage: 160 MG VALS AND 5 MG AMLO

REACTIONS (6)
  - PNEUMONIA [None]
  - EMOTIONAL DISORDER [None]
  - TUBERCULOSIS [None]
  - ASTHMA [None]
  - CEREBROVASCULAR ACCIDENT [None]
  - BLOOD PRESSURE INCREASED [None]
